FAERS Safety Report 25200433 (Version 1)
Quarter: 2025Q2

REPORT INFORMATION
  Report Type: Spontaneous
  Country: US (occurrence: US)
  Receive Date: 20250415
  Receipt Date: 20250415
  Transmission Date: 20250716
  Serious: No
  Sender: MISSION
  Company Number: US-Mission Pharmacal Company-2174841

PATIENT
  Age: 19 Year
  Sex: Female

DRUGS (2)
  1. THIOLA EC [Suspect]
     Active Substance: TIOPRONIN
     Indication: Cystinuria
     Dates: start: 20201111
  2. THIOLA EC [Suspect]
     Active Substance: TIOPRONIN
     Dates: start: 20220630

REACTIONS (1)
  - Drug ineffective [Unknown]
